FAERS Safety Report 5000068-8 (Version None)
Quarter: 2006Q2

REPORT INFORMATION
  Report Type: 
  Country: None (occurrence: None)
  Receive Date: 20060501
  Receipt Date: 20060418
  Transmission Date: 20061013
  Serious: Yes (Hospitalization)
  Sender: FDA-Public Use
  Company Number: 2006052990

PATIENT
  Age: 70 Year
  Sex: Female

DRUGS (8)
  1. CELEBREX [Suspect]
     Indication: BACK PAIN
     Dosage: 100 MG (100 MG, 1 IN 1 D), ORAL
     Route: 048
     Dates: start: 20060308, end: 20060320
  2. ATENBLOCK (ATENOLOL) [Concomitant]
  3. DIOVAN COMP (HYDROCHLOROTHIAZIDE, VALSARTAN) [Concomitant]
  4. PRIMASPAN (ACETYLSALICYLIC ACID) [Concomitant]
  5. FOLVITE (FOLIC ACID) [Concomitant]
  6. ESCITALOPRAM OXALATE [Concomitant]
  7. EZETROL (EZETIMIBE) [Concomitant]
  8. ALL OTHER THERAPEUTIC PRODUCTS (ALL OTHER THERAPEUTIC PRODUCTS) [Concomitant]

REACTIONS (4)
  - DEHYDRATION [None]
  - DIARRHOEA [None]
  - DISSEMINATED INTRAVASCULAR COAGULATION [None]
  - HYPOTENSION [None]
